FAERS Safety Report 7813032-8 (Version None)
Quarter: 2011Q4

REPORT INFORMATION
  Report Type: 
  Country: None (occurrence: None)
  Receive Date: 20111013
  Receipt Date: 20111005
  Transmission Date: 20120403
  Serious: Yes (Hospitalization, Other)
  Sender: FDA-Public Use
  Company Number: US-ABBOTT-11P-163-0861220-00

PATIENT
  Sex: Male
  Weight: 81.72 kg

DRUGS (8)
  1. FERROUS SULFATE W/VITAMINS NOS [Concomitant]
     Indication: PRODUCT USED FOR UNKNOWN INDICATION
  2. PROVENGE [Suspect]
     Indication: PROSTATE CANCER
     Dosage: 250 ML, SINGLE
     Route: 042
     Dates: start: 20110331, end: 20110331
  3. VICODIN [Suspect]
     Indication: PRODUCT USED FOR UNKNOWN INDICATION
  4. LISINOPRIL [Concomitant]
     Indication: PRODUCT USED FOR UNKNOWN INDICATION
  5. PROVENGE [Suspect]
     Route: 042
     Dates: start: 20110519, end: 20110519
  6. PROVENGE [Suspect]
     Route: 042
     Dates: start: 20110603, end: 20110603
  7. DOXYCYCLINE [Concomitant]
     Indication: PRODUCT USED FOR UNKNOWN INDICATION
  8. DENOSUMAB [Suspect]
     Indication: PRODUCT USED FOR UNKNOWN INDICATION

REACTIONS (11)
  - HYPOTENSION [None]
  - BACTERAEMIA [None]
  - DEHYDRATION [None]
  - METASTASES TO BONE [None]
  - HYPERTENSION [None]
  - CONSTIPATION [None]
  - DIARRHOEA [None]
  - OTITIS MEDIA [None]
  - DECREASED APPETITE [None]
  - ASTHENIA [None]
  - URINARY RETENTION [None]
